FAERS Safety Report 20409584 (Version 5)
Quarter: 2022Q3

REPORT INFORMATION
  Report Type: Spontaneous
  Country: JP (occurrence: JP)
  Receive Date: 20220201
  Receipt Date: 20220715
  Transmission Date: 20221027
  Serious: Yes (Other)
  Sender: FDA-Public Use
  Company Number: JP-GLAXOSMITHKLINE-JP2022JPN016396

PATIENT

DRUGS (1)
  1. NUCALA [Suspect]
     Active Substance: MEPOLIZUMAB
     Indication: Eosinophilic granulomatosis with polyangiitis
     Dosage: 300 MG, ONCE/4 WEEKS
     Dates: start: 202201

REACTIONS (2)
  - Epilepsy [Recovered/Resolved]
  - Hyperphosphataemia [Unknown]

NARRATIVE: CASE EVENT DATE: 20220101
